FAERS Safety Report 5598869-0 (Version None)
Quarter: 2008Q1

REPORT INFORMATION
  Report Type: 
  Country: None (occurrence: None)
  Receive Date: 20080122
  Receipt Date: 20080115
  Transmission Date: 20080703
  Serious: Yes (Death, Hospitalization)
  Sender: FDA-Public Use
  Company Number: US-BRISTOL-MYERS SQUIBB COMPANY-13960455

PATIENT
  Age: 85 Year
  Sex: Male
  Weight: 71 kg

DRUGS (38)
  1. CETUXIMAB [Suspect]
     Indication: COLORECTAL CANCER METASTATIC
     Route: 042
     Dates: start: 20070425, end: 20071017
  2. BEVACIZUMAB [Suspect]
     Indication: COLORECTAL CANCER METASTATIC
     Dosage: BATCH# FOR DRUG RECEIVED ON 17OCT07
     Route: 042
     Dates: start: 20070425, end: 20071017
  3. FLUOROURACIL [Suspect]
     Indication: COLORECTAL CANCER METASTATIC
     Dosage: TAKING BOLUS 784 MG IV AND PUMP 4704 MG IV.
     Route: 040
     Dates: start: 20070425, end: 20071017
  4. LEUCOVORIN [Suspect]
     Indication: COLORECTAL CANCER METASTATIC
     Route: 042
     Dates: start: 20070425, end: 20071017
  5. CALCIUM GLUCONATE [Concomitant]
     Indication: MINERAL SUPPLEMENTATION
     Route: 048
     Dates: start: 20070401, end: 20071104
  6. NEXIUM [Concomitant]
     Indication: GASTROOESOPHAGEAL REFLUX DISEASE
     Route: 048
     Dates: start: 20070401, end: 20071025
  7. VASOTEC [Concomitant]
     Indication: HYPERTENSION
     Route: 048
     Dates: start: 20060101, end: 20071025
  8. IRON [Concomitant]
     Indication: MEDICAL DIET
     Route: 048
     Dates: start: 20070401, end: 20071104
  9. ZOCOR [Concomitant]
     Indication: LIPIDS INCREASED
     Route: 048
     Dates: start: 20060101, end: 20071025
  10. COUMADIN [Concomitant]
     Indication: ANTICOAGULANT THERAPY
     Route: 048
     Dates: start: 20070301, end: 20071025
  11. PLAVIX [Concomitant]
     Indication: PLATELET AGGREGATION ABNORMAL
     Route: 048
     Dates: start: 20060101, end: 20071025
  12. ASCORBIC ACID [Concomitant]
     Indication: VITAMIN SUPPLEMENTATION
     Route: 048
     Dates: start: 20070401, end: 20071025
  13. MEGACE ES [Concomitant]
     Indication: DECREASED APPETITE
     Dosage: ORAL,800MG,DAILY.
     Route: 048
     Dates: start: 20070901, end: 20071103
  14. DETROL LA [Concomitant]
     Indication: BLADDER DISORDER
     Route: 048
     Dates: start: 20070101, end: 20071025
  15. ASPIRIN [Concomitant]
  16. ACYCLOVIR [Concomitant]
     Indication: PROPHYLAXIS
     Dosage: ACYCLOVIR 5%400MG IV Q12HRS 03NOV07-04NOV07
     Route: 061
     Dates: start: 20071103, end: 20071104
  17. ALBUMIN (HUMAN) [Concomitant]
     Indication: PROPHYLAXIS
     Route: 042
     Dates: start: 20071104, end: 20071104
  18. BUMEX [Concomitant]
     Indication: PROPHYLAXIS
     Route: 042
     Dates: start: 20071103, end: 20071104
  19. OS-CAL + D [Concomitant]
     Indication: VITAMIN SUPPLEMENTATION
     Route: 048
     Dates: start: 20071026, end: 20071104
  20. FEOSOL [Concomitant]
     Indication: VITAMIN SUPPLEMENTATION
     Route: 048
     Dates: start: 20071026, end: 20071104
  21. NEUPOGEN [Concomitant]
     Indication: PROPHYLAXIS
     Route: 058
     Dates: start: 20071025, end: 20071104
  22. DIFLUCAN [Concomitant]
     Indication: PROPHYLAXIS
     Route: 048
     Dates: start: 20071027, end: 20071104
  23. HEPARIN [Concomitant]
     Indication: INTRAVENOUS CATHETER MANAGEMENT
     Route: 042
     Dates: start: 20071031, end: 20071105
  24. DEXTROSE 5% [Concomitant]
     Indication: FLUID REPLACEMENT
     Dosage: 1000ML, 200MEQ,40MEQ/20ML IV ATC 31OCT07-01NOV07 1000ML, 200MEQ,60MEQ/30ML IV ATC 01NOV07-04NOV07
     Route: 042
     Dates: start: 20071031, end: 20071101
  25. MAGNESIUM SULFATE [Concomitant]
     Indication: HYPOMAGNESAEMIA
     Route: 042
     Dates: start: 20071027, end: 20071031
  26. NYSTATIN [Concomitant]
     Indication: FUNGAL INFECTION
     Route: 048
     Dates: start: 20071103, end: 20071104
  27. TEARS PLUS [Concomitant]
     Indication: DRY EYE
     Dosage: 1 GTT/B EYES TID
     Dates: start: 20071025, end: 20071104
  28. PROTONIX [Concomitant]
     Indication: ABDOMINAL DISCOMFORT
     Dosage: 40 MG PO DAILY 25OCT2007-03NOV2007
     Route: 042
     Dates: start: 20071103, end: 20071104
  29. VITAMIN K [Concomitant]
     Indication: VITAMIN SUPPLEMENTATION
     Route: 058
     Dates: start: 20071026, end: 20071026
  30. ZOSYN [Concomitant]
     Indication: ANTIBIOTIC PROPHYLAXIS
     Route: 042
     Dates: start: 20071026, end: 20071105
  31. POTASSIUM CHLORIDE [Concomitant]
     Indication: VITAMIN SUPPLEMENTATION
     Dosage: 40MEQ IV *1 03NOV07-03NOV07 INDICATION -ELECTROLYTE IMBALANCE
     Route: 048
     Dates: start: 20071104, end: 20071104
  32. BENADRYL [Concomitant]
     Route: 042
     Dates: start: 20071026, end: 20071031
  33. LASIX [Concomitant]
     Indication: FLUID OVERLOAD
     Route: 042
     Dates: start: 20071104, end: 20071104
  34. HYDROCORTISONE [Concomitant]
     Route: 042
     Dates: start: 20071026, end: 20071103
  35. ATIVAN [Concomitant]
     Indication: ANXIETY
     Route: 042
     Dates: start: 20071103, end: 20071103
  36. TPN [Concomitant]
     Indication: VITAMIN SUPPLEMENTATION
     Route: 042
     Dates: start: 20071102, end: 20071105
  37. TYLENOL [Concomitant]
     Route: 048
     Dates: start: 20071027, end: 20071105
  38. SODIUM BICARBONATE [Concomitant]
     Indication: VITAMIN SUPPLEMENTATION
     Route: 042
     Dates: start: 20071026, end: 20071026

REACTIONS (2)
  - METABOLIC DISORDER [None]
  - SEPSIS [None]
